FAERS Safety Report 11278797 (Version 1)
Quarter: 2015Q3

REPORT INFORMATION
  Report Type: Report from Study
  Country: CA (occurrence: None)
  Receive Date: 20150715
  Receipt Date: 20150715
  Transmission Date: 20151125
  Serious: Yes (Hospitalization, Other)
  Sender: FDA-Public Use
  Company Number: CA-2015VAL000448

PATIENT
  Age: 82 Year
  Sex: Male

DRUGS (11)
  1. ANDRIOL (TESTOSTERONE UNDECANOATE) [Concomitant]
  2. PLAVIX [Concomitant]
     Active Substance: CLOPIDOGREL BISULFATE
  3. METOPROLOL TARTRATE (METOPROLOL TARTRATE) TABLET [Suspect]
     Active Substance: METOPROLOL TARTRATE
     Indication: PRODUCT USED FOR UNKNOWN INDICATION
     Route: 048
  4. SANDOSTATIN LAR DEPOT [Suspect]
     Active Substance: OCTREOTIDE ACETATE
     Indication: PITUITARY TUMOUR BENIGN
     Route: 030
     Dates: start: 20080808
  5. DOSTINEX (CABERGOLINE) [Concomitant]
  6. LIPITOR [Concomitant]
     Active Substance: ATORVASTATIN CALCIUM
  7. SANDOSTATIN [Suspect]
     Active Substance: OCTREOTIDE ACETATE
     Indication: PITUITARY TUMOUR BENIGN
     Route: 058
     Dates: start: 20080602, end: 20080603
  8. SYNTHROID [Concomitant]
     Active Substance: LEVOTHYROXINE SODIUM
  9. ALTACE (RAMIPIRL) [Concomitant]
  10. CORTEF (HYDROCORTISONE) [Concomitant]
  11. ASAPHEN (ACETYLSALICYLIC ACID) [Concomitant]

REACTIONS (2)
  - Blood pressure systolic increased [None]
  - Cerebrovascular accident [None]

NARRATIVE: CASE EVENT DATE: 20141204
